FAERS Safety Report 11327856 (Version 1)
Quarter: 2015Q3

REPORT INFORMATION
  Report Type: Spontaneous
  Country: SI (occurrence: SI)
  Receive Date: 20150731
  Receipt Date: 20150731
  Transmission Date: 20151125
  Serious: Yes (Other)
  Sender: FDA-Public Use
  Company Number: PHHY2015SI089690

PATIENT
  Age: 45 Year
  Sex: Female

DRUGS (1)
  1. TROSPIUM CHLORIDE SANDOZ [Suspect]
     Active Substance: TROSPIUM CHLORIDE
     Indication: ABDOMINAL PAIN
     Route: 042
     Dates: start: 20150713, end: 20150714

REACTIONS (3)
  - Musculoskeletal stiffness [Unknown]
  - Hypersensitivity [Unknown]
  - Rash [Unknown]

NARRATIVE: CASE EVENT DATE: 20150713
